FAERS Safety Report 7097091-9 (Version None)
Quarter: 2010Q4

REPORT INFORMATION
  Report Type: 
  Country: None (occurrence: None)
  Receive Date: 20101111
  Receipt Date: 20101105
  Transmission Date: 20110411
  Serious: Yes (Death, Life-Threatening, Hospitalization)
  Sender: FDA-Public Use
  Company Number: US-GILEAD-2010-0032808

PATIENT
  Sex: Male

DRUGS (17)
  1. LETAIRIS [Suspect]
     Indication: PULMONARY ARTERIAL HYPERTENSION
     Route: 048
     Dates: start: 20080508, end: 20100603
  2. REVATIO [Concomitant]
  3. METOLAZONE [Concomitant]
  4. SPIRONOLACTONE [Concomitant]
  5. DIOVAN [Concomitant]
  6. SPIRIVA HANDINHALER [Concomitant]
  7. ALBUTEROL [Concomitant]
  8. BUMETANIDE [Concomitant]
  9. ZEMPLAR [Concomitant]
  10. CALCIUM ACETATE [Concomitant]
  11. ALLOPURINOL [Concomitant]
  12. HUMALOG PEN [Concomitant]
  13. PRAVACHOL [Concomitant]
  14. SYNTHROID [Concomitant]
  15. PREVACID [Concomitant]
  16. IRON [Concomitant]
  17. VITAMIN D [Concomitant]

REACTIONS (1)
  - RESPIRATORY FAILURE [None]
